FAERS Safety Report 18125734 (Version 1)
Quarter: 2020Q3

REPORT INFORMATION
  Report Type: Spontaneous
  Country: US (occurrence: US)
  Receive Date: 20200807
  Receipt Date: 20200807
  Transmission Date: 20201103
  Serious: Yes (Hospitalization, Other)
  Sender: FDA-Public Use
  Company Number: US-TOLMAR, INC.-20US022293

PATIENT
  Age: 68 Year
  Sex: Male

DRUGS (4)
  1. CARBOPLATIN. [Suspect]
     Active Substance: CARBOPLATIN
     Indication: SALIVARY GLAND CANCER RECURRENT
     Route: 065
  2. ELIGARD [Suspect]
     Active Substance: LEUPROLIDE ACETATE
     Indication: SALIVARY GLAND CANCER RECURRENT
     Dosage: 45 MG, Q 6 MONTH
     Route: 058
  3. BICALUTAMIDE. [Suspect]
     Active Substance: BICALUTAMIDE
     Indication: SALIVARY GLAND CANCER RECURRENT
     Dosage: 50 MG, QD
     Route: 065
  4. PACLITAXEL. [Suspect]
     Active Substance: PACLITAXEL
     Indication: SALIVARY GLAND CANCER RECURRENT
     Dosage: 200 MG/M2 IN 21?DAY CYCLES

REACTIONS (6)
  - Cardiac failure acute [Unknown]
  - Therapeutic product effect incomplete [Unknown]
  - Metastases to central nervous system [Unknown]
  - Acute myocardial infarction [Unknown]
  - Off label use [Unknown]
  - Metastases to eye [Unknown]
